FAERS Safety Report 7486096-1 (Version None)
Quarter: 2011Q2

REPORT INFORMATION
  Report Type: 
  Country: None (occurrence: None)
  Receive Date: 20110517
  Receipt Date: 20110510
  Transmission Date: 20111010
  Serious: Yes (Hospitalization)
  Sender: FDA-Public Use
  Company Number: NL-AMGEN-NLDSP2011024232

PATIENT
  Age: 64 Year
  Sex: Female

DRUGS (6)
  1. METOCLOPRAMIDE [Concomitant]
  2. NEULASTA [Suspect]
     Indication: CHEMOTHERAPY
     Dosage: 6 MG, UNK
     Dates: start: 20110419
  3. DEXAMETHASONE [Concomitant]
  4. EMEND                              /01627301/ [Concomitant]
  5. ANTINEOPLASTIC AGENTS [Concomitant]
  6. CIPROFLOXACIN [Concomitant]

REACTIONS (4)
  - PYREXIA [None]
  - PHARYNGITIS [None]
  - BACK PAIN [None]
  - HEADACHE [None]
